FAERS Safety Report 6109294-8 (Version None)
Quarter: 2009Q1

REPORT INFORMATION
  Report Type: 
  Country: None (occurrence: None)
  Receive Date: 20090310
  Receipt Date: 20090227
  Transmission Date: 20090719
  Serious: Yes (Other)
  Sender: FDA-Public Use
  Company Number: JP-NOVOPROD-284972

PATIENT
  Age: 51 Year
  Sex: Male
  Weight: 64 kg

DRUGS (2)
  1. NOVORAPID 30 MIX CHU PENFILL [Suspect]
     Indication: TYPE 1 DIABETES MELLITUS
     Dosage: 12-16 IU, QD
     Route: 058
  2. HUMALOG N [Concomitant]
     Indication: TYPE 1 DIABETES MELLITUS
     Dosage: 12 IU, QD
     Route: 058

REACTIONS (2)
  - HYPOGLYCAEMIC UNCONSCIOUSNESS [None]
  - LOSS OF CONSCIOUSNESS [None]
